FAERS Safety Report 14271035 (Version 1)
Quarter: 2017Q4

REPORT INFORMATION
  Report Type: Spontaneous
  Country: JP (occurrence: JP)
  Receive Date: 20171211
  Receipt Date: 20171211
  Transmission Date: 20180321
  Serious: Yes (Hospitalization, Other)
  Sender: FDA-Public Use
  Company Number: JP-OTSUKA-2016_026607AA

PATIENT
  Age: 75 Year
  Sex: Female

DRUGS (13)
  1. BELSOMRA [Suspect]
     Active Substance: SUVOREXANT
     Indication: PRODUCT USED FOR UNKNOWN INDICATION
     Dosage: 20 MG, QD
     Route: 065
     Dates: start: 20160903
  2. LITHIUM. [Concomitant]
     Active Substance: LITHIUM
     Indication: PRODUCT USED FOR UNKNOWN INDICATION
     Dosage: 100 (UNITS UNKNOWN), QD
     Route: 065
     Dates: start: 20160827, end: 20160829
  3. ABILIFY [Suspect]
     Active Substance: ARIPIPRAZOLE
     Dosage: 12 MG, QD
     Route: 048
     Dates: start: 20130219, end: 20160826
  4. ABILIFY [Suspect]
     Active Substance: ARIPIPRAZOLE
     Dosage: 18 MG, QD
     Route: 048
     Dates: start: 20160827, end: 20160902
  5. BELSOMRA [Suspect]
     Active Substance: SUVOREXANT
     Dosage: 10 MG, QD
     Route: 065
     Dates: start: 20160830, end: 20160902
  6. LITHIUM. [Concomitant]
     Active Substance: LITHIUM
     Dosage: 400 (UNITIS UNKNOWN), QD
     Route: 065
     Dates: start: 20160803, end: 20160821
  7. LITHIUM. [Concomitant]
     Active Substance: LITHIUM
     Dosage: 200 (UNITS UNKNOWN), QD
     Route: 065
     Dates: start: 20160822, end: 20160826
  8. VALPROATE NA [Concomitant]
     Active Substance: VALPROATE SODIUM
     Indication: PRODUCT USED FOR UNKNOWN INDICATION
     Dosage: 600 MG, QD
     Route: 065
     Dates: start: 201607, end: 20160906
  9. LITHIUM. [Concomitant]
     Active Substance: LITHIUM
     Indication: PRODUCT USED FOR UNKNOWN INDICATION
     Dosage: 400 UNK, QD
     Route: 065
     Dates: start: 20160803, end: 20160821
  10. LITHIUM. [Concomitant]
     Active Substance: LITHIUM
     Dosage: 200 UNK, QD
     Route: 065
     Dates: start: 20160822, end: 20160826
  11. LITHIUM. [Concomitant]
     Active Substance: LITHIUM
     Dosage: 100 UNK, QD
     Route: 065
     Dates: start: 20160827, end: 20160829
  12. ABILIFY [Suspect]
     Active Substance: ARIPIPRAZOLE
     Indication: SCHIZOAFFECTIVE DISORDER
     Dosage: 24 MG, QD
     Route: 048
     Dates: start: 20160903
  13. BIPERIDEN [Concomitant]
     Active Substance: BIPERIDEN
     Indication: PRODUCT USED FOR UNKNOWN INDICATION
     Dosage: 2 DF, QD
     Route: 065
     Dates: start: 201607, end: 20160906

REACTIONS (2)
  - Dehydration [Unknown]
  - Hypokalaemia [Recovered/Resolved]

NARRATIVE: CASE EVENT DATE: 20160906
